FAERS Safety Report 20517050 (Version 2)
Quarter: 2022Q2

REPORT INFORMATION
  Report Type: Report from Study
  Country: US (occurrence: US)
  Receive Date: 20220225
  Receipt Date: 20220516
  Transmission Date: 20220721
  Serious: Yes (Other)
  Sender: FDA-Public Use
  Company Number: US-JNJFOC-20220245323

PATIENT
  Age: 60 Year
  Sex: Female

DRUGS (8)
  1. SPRAVATO [Suspect]
     Active Substance: ESKETAMINE
     Indication: Depression
     Dosage: 56 MG, TOTAL 8 DOSES
     Dates: start: 20200318, end: 20200421
  2. SPRAVATO [Suspect]
     Active Substance: ESKETAMINE
     Dosage: 84 MG, TOTAL 4 DOSES
     Dates: start: 20200427, end: 20200521
  3. SPRAVATO [Suspect]
     Active Substance: ESKETAMINE
     Dosage: 56 MG, 2 TOTAL DOSES
     Dates: start: 20200603, end: 20200610
  4. SPRAVATO [Suspect]
     Active Substance: ESKETAMINE
     Dosage: 84 MG, 4 TOTAL DOSES
     Dates: start: 20200617, end: 20200820
  5. SPRAVATO [Suspect]
     Active Substance: ESKETAMINE
     Dosage: 56 MG, TOTAL 20 DOSES
     Dates: start: 20200909, end: 20210805
  6. SPRAVATO [Suspect]
     Active Substance: ESKETAMINE
     Dosage: 84 MG, TOTAL 6 DOSES
     Dates: start: 20210819, end: 20210930
  7. SPRAVATO [Suspect]
     Active Substance: ESKETAMINE
     Dosage: 56 MG, 2 TOTAL DOSES
     Dates: start: 20211215, end: 20220105
  8. SPRAVATO [Suspect]
     Active Substance: ESKETAMINE
     Dates: start: 20220216, end: 20220216

REACTIONS (3)
  - Anxiety [Recovered/Resolved]
  - Sedation [Recovered/Resolved]
  - Dissociation [Recovered/Resolved]

NARRATIVE: CASE EVENT DATE: 20220216
